FAERS Safety Report 6916391-3 (Version None)
Quarter: 2010Q3

REPORT INFORMATION
  Report Type: 
  Country: None (occurrence: None)
  Receive Date: 20100810
  Receipt Date: 20100728
  Transmission Date: 20110219
  Serious: Yes (Hospitalization)
  Sender: FDA-Public Use
  Company Number: US-ALEXION-A201000698

PATIENT
  Sex: Female

DRUGS (12)
  1. SOLIRIS [Suspect]
     Indication: PAROXYSMAL NOCTURNAL HAEMOGLOBINURIA
     Dosage: 600 MG QWK, UNK
     Route: 042
     Dates: start: 20100211, end: 20100301
  2. SOLIRIS [Suspect]
     Dosage: 900 MG Q2WKS, UNK
     Route: 042
     Dates: start: 20100312
  3. ISOSORB                            /00586302/ [Concomitant]
  4. ASPIRIN [Concomitant]
     Dosage: 81 MG, QD
     Route: 048
  5. ZOCOR [Concomitant]
     Dosage: 40 MG, QD
     Route: 048
  6. COUMADIN [Concomitant]
     Dosage: UNK
  7. PREDNISONE [Concomitant]
     Dosage: 5 MG, QD
     Route: 048
  8. ELAVIL [Concomitant]
     Dosage: 25 MG, BID
     Route: 048
  9. VITAMIN C                          /00008001/ [Concomitant]
  10. MULTI-VITAMINS [Concomitant]
     Dosage: UNK
  11. GLUCOSAMINE [Concomitant]
  12. ISOSORBID                          /00586303/ [Concomitant]

REACTIONS (5)
  - ANAEMIA [None]
  - DELIRIUM FEBRILE [None]
  - FATIGUE [None]
  - HEADACHE [None]
  - HERPES VIRUS INFECTION [None]
